FAERS Safety Report 20237310 (Version 1)
Quarter: 2021Q4

REPORT INFORMATION
  Report Type: Report from Study
  Country: US (occurrence: US)
  Receive Date: 20211228
  Receipt Date: 20211228
  Transmission Date: 20220303
  Serious: Yes (Other)
  Sender: FDA-Public Use
  Company Number: US-NOVARTISPH-NVSC2021US284556

PATIENT
  Sex: Male

DRUGS (3)
  1. LUTATHERA [Suspect]
     Active Substance: LUTETIUM OXODOTREOTIDE LU-177
     Indication: Product used for unknown indication
     Dosage: UNK
     Route: 065
  2. ZOFRAN [Suspect]
     Active Substance: ONDANSETRON HYDROCHLORIDE
     Indication: Product used for unknown indication
     Dosage: UNK
     Route: 048
  3. TRAMADOL [Suspect]
     Active Substance: TRAMADOL
     Indication: Product used for unknown indication
     Dosage: UNK
     Route: 048

REACTIONS (12)
  - Metastases to liver [Unknown]
  - Blood bilirubin increased [Unknown]
  - Pneumonia [Unknown]
  - Disease progression [Unknown]
  - Diverticulum [Unknown]
  - Abdominal pain [Unknown]
  - Pain [Unknown]
  - Renal cyst [Unknown]
  - Abdominal tenderness [Unknown]
  - Blood alkaline phosphatase increased [Unknown]
  - Laboratory test abnormal [Unknown]
  - Dizziness [Unknown]
